FAERS Safety Report 25748800 (Version 2)
Quarter: 2025Q4

REPORT INFORMATION
  Report Type: Spontaneous
  Country: US (occurrence: US)
  Receive Date: 20250902
  Receipt Date: 20251014
  Transmission Date: 20260118
  Serious: No
  Sender: ROCHE
  Company Number: US-ROCHE-10000377549

PATIENT
  Age: 55 Year
  Sex: Female
  Weight: 58.06 kg

DRUGS (14)
  1. KADCYLA [Suspect]
     Active Substance: ADO-TRASTUZUMAB EMTANSINE
     Indication: Breast cancer stage II
     Dosage: 27-MAY-2025
     Route: 065
  2. HERCEPTIN [Suspect]
     Active Substance: TRASTUZUMAB
     Indication: Breast cancer stage II
     Dosage: CHEMOTHERAPY CHEST PORT
     Route: 065
     Dates: start: 20241224, end: 202502
  3. HERCEPTIN [Suspect]
     Active Substance: TRASTUZUMAB
     Indication: Chemotherapy
  4. PERJETA [Suspect]
     Active Substance: PERTUZUMAB
     Indication: Breast cancer stage II
     Dosage: CHEMOTHERAPY CHEST PORT
     Route: 065
     Dates: start: 20241224, end: 202502
  5. PERJETA [Suspect]
     Active Substance: PERTUZUMAB
     Indication: Chemotherapy
  6. CARBOPLATIN [Concomitant]
     Active Substance: CARBOPLATIN
     Indication: Breast cancer stage II
     Dosage: CHEMOTHERAPY CHEST PORT
     Dates: start: 20241224, end: 202502
  7. CARBOPLATIN [Concomitant]
     Active Substance: CARBOPLATIN
     Indication: Chemotherapy
  8. DOCETAXEL [Concomitant]
     Active Substance: DOCETAXEL
     Indication: Breast cancer stage II
     Dosage: CHEMOTHERAPY CHEST PORT
     Dates: start: 20241224, end: 202502
  9. DOCETAXEL [Concomitant]
     Active Substance: DOCETAXEL
     Indication: Chemotherapy
  10. ANASTROZOLE [Concomitant]
     Active Substance: ANASTROZOLE
     Indication: Breast cancer stage II
     Route: 048
     Dates: start: 202507
  11. VITAMIN D [Concomitant]
     Active Substance: VITAMIN D NOS
     Route: 048
  12. VITAMINS [Concomitant]
     Active Substance: VITAMINS
     Route: 048
  13. OMEGA 3 [Concomitant]
     Active Substance: CAPSAICIN
     Route: 048
  14. CALCIUM [Concomitant]
     Active Substance: CALCIUM
     Route: 048

REACTIONS (3)
  - Hepatic enzyme increased [Not Recovered/Not Resolved]
  - Weight decreased [Not Recovered/Not Resolved]
  - Blood pressure decreased [Not Recovered/Not Resolved]

NARRATIVE: CASE EVENT DATE: 20241224
